FAERS Safety Report 4541983-9 (Version None)
Quarter: 2004Q4

REPORT INFORMATION
  Report Type: 
  Country: None (occurrence: None)
  Receive Date: 20041227
  Receipt Date: 20041212
  Transmission Date: 20050328
  Serious: Yes (Other)
  Sender: FDA-Public Use
  Company Number: 2003-03-2061

PATIENT
  Age: 30 Year
  Sex: Female
  Weight: 56.246 kg

DRUGS (7)
  1. CLARITIN ALLERGY 24 HR 10MG (LORATDINE) TABLETS [Suspect]
     Indication: HYPERSENSITIVITY
     Dosage: 10MG TAB QD ORAL
     Route: 048
     Dates: start: 20010417, end: 20010430
  2. HUMALOG (INSULIN ANALOG) [Concomitant]
  3. SYNTHROID [Concomitant]
  4. PROMETHAZINE [Concomitant]
  5. HUMULIN 70/30 SLIDING SCALE [Concomitant]
  6. ATIVAN [Concomitant]
  7. ALLEGRA [Concomitant]

REACTIONS (13)
  - ALOPECIA AREATA [None]
  - ALOPECIA UNIVERSALIS [None]
  - ANXIETY [None]
  - BLOOD GLUCOSE FLUCTUATION [None]
  - CONJUNCTIVITIS ALLERGIC [None]
  - ERYTHEMA [None]
  - HAIR COLOUR CHANGES [None]
  - HEADACHE [None]
  - HYPOMENORRHOEA [None]
  - HYPOTRICHOSIS [None]
  - RHINITIS ALLERGIC [None]
  - SINUSITIS [None]
  - TINNITUS [None]
